FAERS Safety Report 6411843-7 (Version None)
Quarter: 2009Q4

REPORT INFORMATION
  Report Type: 
  Country: None (occurrence: None)
  Receive Date: 20091020
  Receipt Date: 20060105
  Transmission Date: 20100525
  Serious: Yes (Hospitalization)
  Sender: FDA-Public Use
  Company Number: 2009009152

PATIENT
  Age: 76 Year
  Sex: Male
  Weight: 63.5036 kg

DRUGS (5)
  1. ACTIQ [Suspect]
     Indication: ARTHRITIS
     Dosage: 2400 MCG (600 MCG, 4 IN 1 D), BU
     Route: 002
     Dates: start: 20040101
  2. ACTIQ [Suspect]
     Indication: CHEST PAIN
     Dosage: 2400 MCG (600 MCG, 4 IN 1 D), BU
     Route: 002
     Dates: start: 20040101
  3. ACTIQ [Suspect]
     Indication: HEADACHE
     Dosage: 2400 MCG (600 MCG, 4 IN 1 D), BU
     Route: 002
     Dates: start: 20040101
  4. ACTIQ [Suspect]
     Indication: NECK PAIN
     Dosage: 2400 MCG (600 MCG, 4 IN 1 D), BU
     Route: 002
     Dates: start: 20040101
  5. HYDROCODONE (HYDRCODONE) [Concomitant]

REACTIONS (2)
  - DRUG PRESCRIBING ERROR [None]
  - DYSPNOEA [None]
